FAERS Safety Report 8769292 (Version 3)
Quarter: 2013Q3

REPORT INFORMATION
  Report Type: Report from Study
  Country: JP (occurrence: JP)
  Receive Date: 20120905
  Receipt Date: 20130725
  Transmission Date: 20140515
  Serious: Yes (Other)
  Sender: FDA-Public Use
  Company Number: JP-009507513-1208JPN007198

PATIENT
  Age: 67 Year
  Sex: Male
  Weight: 72 kg

DRUGS (17)
  1. PEGINTRON [Suspect]
     Indication: CHRONIC HEPATITIS C
     Dosage: 1.5 MICROGRAM PER KILOGRAM, QW, DAILY DOSE UNKNOWN
     Route: 058
     Dates: start: 20120120, end: 20120224
  2. REBETOL [Suspect]
     Indication: CHRONIC HEPATITIS C
     Dosage: 800 MG, QD
     Route: 048
     Dates: start: 20120120, end: 20120202
  3. REBETOL [Suspect]
     Dosage: 600 MG, QD
     Route: 048
     Dates: start: 20120203, end: 20120208
  4. REBETOL [Suspect]
     Dosage: 200 MG, QD
     Route: 048
     Dates: start: 20120209, end: 20120224
  5. TELAVIC [Suspect]
     Indication: CHRONIC HEPATITIS C
     Dosage: 2250 MG, QD
     Route: 048
     Dates: start: 20120120, end: 20120216
  6. TELAVIC [Suspect]
     Dosage: 1500 MG, QD
     Route: 048
     Dates: start: 20120217, end: 20120223
  7. RENIVACE TABLETS 5 [Concomitant]
     Indication: HYPERTENSION
     Dosage: 5 MG, QD, FORMULATION:POR
     Route: 048
  8. AMLODIN (AMLODIPINE BESYLATE) [Concomitant]
     Indication: HYPERTENSION
     Dosage: 5 MG, QD, FORMULATION: POR
     Route: 048
  9. METGLUCO [Concomitant]
     Indication: DIABETES MELLITUS
     Dosage: 750 MG, QD; FORMULATION: POR
     Route: 048
  10. MEVALOTIN [Concomitant]
     Indication: HYPERLIPIDAEMIA
     Dosage: 10 MG, QD, FORMULATION:POR
     Route: 048
  11. JANUVIA TABLETS 50MG [Concomitant]
     Indication: DIABETES MELLITUS
     Dosage: 50 MG, QD, FORMULATION:POR
     Route: 048
  12. ADRENAL EXTRACT [Concomitant]
     Dosage: UNK
  13. DIACORT [Concomitant]
     Dosage: Q.S/ QD, DAILY DOSE UNKNOWN
     Route: 061
     Dates: start: 20120123, end: 20120203
  14. AMLODIN OD [Concomitant]
     Indication: HYPERTENSION
     Dosage: 5 MG, QD, FORMULATION:POR
     Route: 048
  15. PREDONINE [Concomitant]
     Dosage: 30 MG, QD,  FORMULATION:POR
     Route: 048
     Dates: start: 20120125, end: 20120127
  16. PREDONINE [Concomitant]
     Dosage: 20 MG, QD, FORMULATION:POR
     Route: 048
     Dates: start: 20120128, end: 20120131
  17. PREDONINE [Concomitant]
     Dosage: 10 MG, QD, FORMULATION:POR
     Route: 048
     Dates: start: 20120201, end: 20120203

REACTIONS (1)
  - Anaemia [Recovered/Resolved]
